FAERS Safety Report 8406552-9 (Version None)
Quarter: 2012Q2

REPORT INFORMATION
  Report Type: 
  Country: None (occurrence: None)
  Receive Date: 20120604
  Receipt Date: 20120531
  Transmission Date: 20120825
  Serious: Yes (Hospitalization)
  Sender: FDA-Public Use
  Company Number: BR-BAYER-2012-053910

PATIENT
  Age: 54 Year
  Sex: Female

DRUGS (2)
  1. BETASERON [Suspect]
     Indication: MULTIPLE SCLEROSIS
     Dosage: 1 ML, QOD
     Route: 058
  2. OMNARIS [Concomitant]
     Indication: ASTHMA
     Dosage: UNK
     Route: 050

REACTIONS (3)
  - SPINAL CORD DISORDER [None]
  - GAIT DISTURBANCE [None]
  - HEADACHE [None]
